FAERS Safety Report 17081927 (Version 1)
Quarter: 2019Q4

REPORT INFORMATION
  Report Type: Spontaneous
  Country: NL (occurrence: RO)
  Receive Date: 20191127
  Receipt Date: 20191127
  Transmission Date: 20200122
  Serious: Yes (Other)
  Sender: FDA-Public Use
  Company Number: RO-FRESENIUS KABI-FK201912957

PATIENT
  Age: 64 Year
  Sex: Male

DRUGS (8)
  1. BEVACIZUMAB. [Suspect]
     Active Substance: BEVACIZUMAB
     Route: 065
     Dates: start: 20180212
  2. CAPECITABINE. [Suspect]
     Active Substance: CAPECITABINE
     Dosage: DAYS 1-14, EVERY 21 DAYS
     Route: 048
     Dates: start: 20171016, end: 20180118
  3. BEVACIZUMAB. [Suspect]
     Active Substance: BEVACIZUMAB
     Indication: COLON CANCER
     Dosage: YES
     Route: 065
     Dates: start: 20171016, end: 20180118
  4. OXALIPLATIN (MANUFACTURER UNKNOWN) [Suspect]
     Active Substance: OXALIPLATIN
     Indication: COLON CANCER
     Route: 065
     Dates: start: 20180212
  5. OXALIPLATIN (MANUFACTURER UNKNOWN) [Suspect]
     Active Substance: OXALIPLATIN
     Route: 065
     Dates: start: 201606, end: 201701
  6. IRINOTECAN (MANUFACTURER UNKNOWN) [Suspect]
     Active Substance: IRINOTECAN
     Indication: COLON CANCER
     Dosage: DAY ONE OF EACH CYCLE
     Route: 065
     Dates: start: 20171016, end: 20180118
  7. CAPECITABINE. [Suspect]
     Active Substance: CAPECITABINE
     Dosage: DAYS 1-14 FROM EACH CYCLE
     Route: 048
     Dates: start: 201606, end: 201701
  8. CAPECITABINE. [Suspect]
     Active Substance: CAPECITABINE
     Indication: COLON CANCER
     Dosage: DAYS 1-14 OF EACH CYCLE
     Route: 048
     Dates: start: 20180212

REACTIONS (3)
  - Neurotoxicity [Unknown]
  - Hypertension [Unknown]
  - Anaemia [Unknown]
